FAERS Safety Report 21516264 (Version 2)
Quarter: 2022Q4

REPORT INFORMATION
  Report Type: Report from Study
  Country: IT (occurrence: IT)
  Receive Date: 20221027
  Receipt Date: 20221109
  Transmission Date: 20230112
  Serious: Yes (Other)
  Sender: FDA-Public Use
  Company Number: IT-TEVA-2022-IT-2819486

PATIENT
  Sex: Male

DRUGS (6)
  1. CARBOPLATIN [Suspect]
     Active Substance: CARBOPLATIN
     Indication: Cervix carcinoma
     Dosage: 1 X 5AUC  , 21 DAYS
     Route: 064
  2. CARBOPLATIN [Suspect]
     Active Substance: CARBOPLATIN
     Dosage: 3 X 4AUC, 21 DAYS
     Route: 064
  3. PACLITAXEL [Suspect]
     Active Substance: PACLITAXEL
     Indication: Cervix carcinoma
     Dosage: 1 X 175 MG/MQ , 21 DAYS
     Route: 064
  4. PACLITAXEL [Suspect]
     Active Substance: PACLITAXEL
     Dosage: 3 X 135 MG/MQ, 21 DAYS
     Route: 064
  5. BETAMETHASONE [Suspect]
     Active Substance: BETAMETHASONE
     Indication: Prophylaxis
     Dosage: 2 DOSES 24H APART , 12 MG
     Route: 064
  6. BETAMETHASONE [Suspect]
     Active Substance: BETAMETHASONE
     Indication: Maternal therapy to enhance foetal lung maturity

REACTIONS (2)
  - Foetal growth restriction [Unknown]
  - Foetal exposure during pregnancy [Unknown]
